FAERS Safety Report 21620691 (Version 1)
Quarter: 2022Q4

REPORT INFORMATION
  Report Type: Spontaneous
  Country: US (occurrence: None)
  Receive Date: 20221118
  Receipt Date: 20221118
  Transmission Date: 20230112
  Serious: Yes (Hospitalization)
  Sender: FDA-Public Use
  Company Number: None

PATIENT
  Age: 17 Year
  Sex: Male
  Weight: 46.9 kg

DRUGS (3)
  1. CYCLOPHOSPHAMIDE [Suspect]
     Active Substance: CYCLOPHOSPHAMIDE
     Dates: end: 20221109
  2. MERCAPTOPURINE [Suspect]
     Active Substance: MERCAPTOPURINE
     Dates: end: 20221109
  3. METHOTREXATE [Suspect]
     Active Substance: METHOTREXATE
     Dates: end: 20221107

REACTIONS (4)
  - Neurotoxicity [None]
  - Aphasia [None]
  - Hemiparesis [None]
  - Facial paralysis [None]

NARRATIVE: CASE EVENT DATE: 20221113
